FAERS Safety Report 19164135 (Version 1)
Quarter: 2021Q2

REPORT INFORMATION
  Report Type: Report from Study
  Country: US (occurrence: US)
  Receive Date: 20210421
  Receipt Date: 20210421
  Transmission Date: 20210717
  Serious: Yes (Death)
  Sender: FDA-Public Use
  Company Number: US-ADAMAS PHARMA, LLC-2021ADA00828

PATIENT
  Age: 75 Year
  Sex: Female

DRUGS (15)
  1. CLONIDINE. [Concomitant]
     Active Substance: CLONIDINE
  2. NORVASC [Concomitant]
     Active Substance: AMLODIPINE BESYLATE
  3. TIZANIDINE. [Concomitant]
     Active Substance: TIZANIDINE
  4. ZOLPIDEM [Concomitant]
     Active Substance: ZOLPIDEM TARTRATE
  5. TYLENOL [Concomitant]
     Active Substance: ACETAMINOPHEN
  6. ASPIRIN. [Concomitant]
     Active Substance: ASPIRIN
  7. MELATONIN [Concomitant]
     Active Substance: MELATONIN
  8. PAROXETINE. [Concomitant]
     Active Substance: PAROXETINE
  9. GOCOVRI [Suspect]
     Active Substance: AMANTADINE
     Indication: DYSKINESIA
     Dosage: 137 MG, 2X/DAY
     Route: 048
     Dates: start: 20190809, end: 2020
  10. GOCOVRI [Suspect]
     Active Substance: AMANTADINE
     Dosage: 137 MG, 2X/DAY
     Route: 048
  11. WARFARIN [Concomitant]
     Active Substance: WARFARIN
  12. CARBIDOPA/LEVODOPA [Concomitant]
     Active Substance: CARBIDOPA\LEVODOPA
  13. LISINOPRIL. [Concomitant]
     Active Substance: LISINOPRIL
  14. RYTARY [Concomitant]
     Active Substance: CARBIDOPA\LEVODOPA
  15. SOTALOL. [Concomitant]
     Active Substance: SOTALOL

REACTIONS (1)
  - Death [Fatal]

NARRATIVE: CASE EVENT DATE: 20210329
